FAERS Safety Report 7515952-0 (Version None)
Quarter: 2011Q2

REPORT INFORMATION
  Report Type: 
  Country: None (occurrence: None)
  Receive Date: 20110601
  Receipt Date: 20110517
  Transmission Date: 20111010
  Serious: Yes (Other)
  Sender: FDA-Public Use
  Company Number: US-JNJFOC-20110507833

PATIENT
  Sex: Female
  Weight: 50.8 kg

DRUGS (5)
  1. ADDERALL XR 10 [Concomitant]
     Dosage: TO STAY AWAKE
     Route: 048
     Dates: start: 20060101
  2. DURAGESIC-100 [Concomitant]
     Indication: PAIN
     Dosage: U/PATCH/U/U/TD
     Dates: start: 20060101
  3. REMICADE [Suspect]
     Indication: PSORIATIC ARTHROPATHY
     Route: 042
     Dates: start: 20080101
  4. VITAMIN B-12 [Concomitant]
     Indication: FATIGUE
     Dosage: U/SOLUTION/U/WEEKLY/U
     Dates: start: 20060101
  5. REMICADE [Suspect]
     Indication: PUSTULAR PSORIASIS
     Route: 042
     Dates: start: 20080101

REACTIONS (11)
  - IMPAIRED GASTRIC EMPTYING [None]
  - PSORIATIC ARTHROPATHY [None]
  - ADVERSE EVENT [None]
  - PSORIASIS [None]
  - POSTURAL ORTHOSTATIC TACHYCARDIA SYNDROME [None]
  - FUNGAL INFECTION [None]
  - ADRENAL INSUFFICIENCY [None]
  - LETHARGY [None]
  - THYROID DISORDER [None]
  - ORTHOSTATIC HYPOTENSION [None]
  - MALAISE [None]
